FAERS Safety Report 6764525 (Version 4)
Quarter: 2019Q1

REPORT INFORMATION
  Report Type: Spontaneous
  Country: DK (occurrence: DK)
  Receive Date: 20050906
  Receipt Date: 20190103
  Transmission Date: 20190418
  Serious: Yes (Hospitalization)
  Sender: FDA-Public Use
  Company Number: DK-PFIZER INC-2005118897

PATIENT
  Age: 66 Year
  Sex: Male

DRUGS (4)
  1. DIFLUCAN [Suspect]
     Active Substance: FLUCONAZOLE
     Indication: ILL-DEFINED DISORDER
     Dosage: 50 MG, 1X/DAY
     Route: 048
     Dates: start: 20040807, end: 20040811
  2. PHENPROCOUMON [Interacting]
     Active Substance: PHENPROCOUMON
     Indication: ILL-DEFINED DISORDER
     Dosage: 1.5 MG, (6 DAYS EVERY 1 WEEKS)
     Route: 048
  3. NIMORAZOLE [Suspect]
     Active Substance: NIMORAZOLE
     Indication: GLOTTIS CARCINOMA
     Dosage: 2500 MG, DAILY
     Route: 048
     Dates: start: 20040716, end: 20040823
  4. ACETAMINOPHEN. [Concomitant]
     Active Substance: ACETAMINOPHEN
     Dosage: 1 G, 4X/DAY

REACTIONS (2)
  - Drug interaction [Recovered/Resolved]
  - International normalised ratio increased [Recovered/Resolved]

NARRATIVE: CASE EVENT DATE: 20040804
